FAERS Safety Report 5698443-1 (Version None)
Quarter: 2008Q2

REPORT INFORMATION
  Report Type: 
  Country: None (occurrence: None)
  Receive Date: 20080408
  Receipt Date: 20061207
  Transmission Date: 20081010
  Serious: Yes (Other)
  Sender: FDA-Public Use
  Company Number: US-BAYER-US-2006-014455

PATIENT
  Age: 55 Year
  Sex: Female
  Weight: 67 kg

DRUGS (2)
  1. CLIMARA [Suspect]
     Indication: MENOPAUSAL SYMPTOMS
     Route: 062
     Dates: start: 20050301, end: 20060605
  2. VITAMINS [Concomitant]

REACTIONS (5)
  - CHEST PAIN [None]
  - DIZZINESS [None]
  - ERYTHEMA [None]
  - HALO VISION [None]
  - LOSS OF CONSCIOUSNESS [None]
